FAERS Safety Report 18457453 (Version 3)
Quarter: 2022Q2

REPORT INFORMATION
  Report Type: Spontaneous
  Country: US (occurrence: US)
  Receive Date: 20201030
  Receipt Date: 20220618
  Transmission Date: 20220720
  Serious: Yes (Hospitalization, Other)
  Sender: FDA-Public Use
  Company Number: US-TEVA-2020-US-1843175

PATIENT
  Sex: Female

DRUGS (1)
  1. TREPROSTINIL [Suspect]
     Active Substance: TREPROSTINIL
     Indication: Pulmonary arterial hypertension
     Dosage: 35 NG/KG/MIN
     Route: 042
     Dates: start: 20200729

REACTIONS (3)
  - Hospitalisation [Unknown]
  - Catheter site discharge [Not Recovered/Not Resolved]
  - Abdominal pain [Unknown]
